FAERS Safety Report 9567122 (Version 1)
Quarter: 2013Q3

REPORT INFORMATION
  Report Type: Spontaneous
  Country: US (occurrence: US)
  Receive Date: 20130930
  Receipt Date: 20130930
  Transmission Date: 20140515
  Serious: No
  Sender: FDA-Public Use
  Company Number: US-AMGEN-USASP2012061092

PATIENT
  Sex: Female

DRUGS (13)
  1. ENBREL [Suspect]
     Indication: RHEUMATOID ARTHRITIS
     Dosage: 50 MG, QWK
     Route: 058
  2. COZAAR [Concomitant]
     Dosage: 25 MG, UNK
  3. TOPAMAX [Concomitant]
     Dosage: 100 MG, UNK
  4. METHOTREXATE [Concomitant]
     Dosage: 2.5 MG, UNK
  5. DILANTIN                           /00017401/ [Concomitant]
     Dosage: 100 MG, UNK
  6. ATENOLOL [Concomitant]
     Dosage: 25 MG, UNK
  7. GABAPENTIN [Concomitant]
     Dosage: 100 MG, UNK
  8. OMEPRAZOLE [Concomitant]
     Dosage: 20 MG, UNK
  9. ZONISAMIDE [Concomitant]
     Dosage: 25 MG, UNK
  10. CLARITIN                           /00413701/ [Concomitant]
     Dosage: 10 MG, UNK
  11. CALCIUM [Concomitant]
     Dosage: CALCIUM 500
  12. FOLIC ACID [Concomitant]
     Dosage: UNK
  13. TRIAM                              /00012501/ [Concomitant]
     Dosage: 37.5-25

REACTIONS (5)
  - Erythema [Unknown]
  - Feeling hot [Unknown]
  - Injection site reaction [Unknown]
  - Injection site warmth [Unknown]
  - Injection site erythema [Unknown]
